FAERS Safety Report 23715071 (Version 12)
Quarter: 2024Q4

REPORT INFORMATION
  Report Type: Report from Study
  Country: US (occurrence: US)
  Receive Date: 20240406
  Receipt Date: 20241217
  Transmission Date: 20250114
  Serious: Yes (Disabling, Other)
  Sender: BOEHRINGER INGELHEIM
  Company Number: US-BoehringerIngelheim-2023-BI-248416

PATIENT
  Age: 58 Year
  Sex: Male

DRUGS (5)
  1. OFEV [Suspect]
     Active Substance: NINTEDANIB
     Indication: Idiopathic pulmonary fibrosis
     Dosage: WITH MEALS
     Route: 048
     Dates: start: 20230621, end: 20231127
  2. OFEV [Suspect]
     Active Substance: NINTEDANIB
     Indication: Interstitial lung disease
     Route: 048
  3. OFEV [Suspect]
     Active Substance: NINTEDANIB
     Indication: Interstitial lung disease
  4. METHADONE [Suspect]
     Active Substance: METHADONE HYDROCHLORIDE
     Indication: Interstitial lung disease
  5. Ritiximab [Concomitant]
     Indication: Product used for unknown indication

REACTIONS (78)
  - Night sweats [Not Recovered/Not Resolved]
  - Weight decreased [Not Recovered/Not Resolved]
  - Fatigue [Not Recovered/Not Resolved]
  - Haematochezia [Not Recovered/Not Resolved]
  - Adenocarcinoma of colon [Not Recovered/Not Resolved]
  - Colon cancer stage III [Not Recovered/Not Resolved]
  - Polymyositis [Unknown]
  - Coagulopathy [Not Recovered/Not Resolved]
  - Pneumonia [Unknown]
  - Weight increased [Not Recovered/Not Resolved]
  - Haemorrhagic diathesis [Not Recovered/Not Resolved]
  - Nausea [Recovered/Resolved]
  - Diarrhoea [Not Recovered/Not Resolved]
  - Abdominal discomfort [Recovered/Resolved]
  - Gastrointestinal disorder [Not Recovered/Not Resolved]
  - COVID-19 [Unknown]
  - Pain [Not Recovered/Not Resolved]
  - Vomiting [Recovering/Resolving]
  - Diarrhoea [Not Recovered/Not Resolved]
  - Dyspepsia [Not Recovered/Not Resolved]
  - Decreased appetite [Not Recovered/Not Resolved]
  - Wound [Recovered/Resolved]
  - Somnolence [Not Recovered/Not Resolved]
  - Nausea [Not Recovered/Not Resolved]
  - Constipation [Not Recovered/Not Resolved]
  - Insomnia [Not Recovered/Not Resolved]
  - Skin haemorrhage [Recovered/Resolved]
  - Blood pressure increased [Recovering/Resolving]
  - Influenza like illness [Recovering/Resolving]
  - Benign prostatic hyperplasia [Not Recovered/Not Resolved]
  - Fatigue [Not Recovered/Not Resolved]
  - Affective disorder [Not Recovered/Not Resolved]
  - Tremor [Not Recovered/Not Resolved]
  - Nervousness [Not Recovered/Not Resolved]
  - Depression [Not Recovered/Not Resolved]
  - Fluid retention [Not Recovered/Not Resolved]
  - Neuropathy peripheral [Not Recovered/Not Resolved]
  - Urinary retention [Not Recovered/Not Resolved]
  - Lung disorder [Not Recovered/Not Resolved]
  - Discoloured vomit [Unknown]
  - White blood cell count increased [Unknown]
  - Malaise [Unknown]
  - Sleep disorder [Unknown]
  - Decreased appetite [Recovered/Resolved]
  - Hiatus hernia [Not Recovered/Not Resolved]
  - Treatment noncompliance [Recovered/Resolved]
  - Increased appetite [Not Recovered/Not Resolved]
  - Osteoporosis [Not Recovered/Not Resolved]
  - Abdominal pain upper [Not Recovered/Not Resolved]
  - Wheezing [Unknown]
  - Myalgia [Unknown]
  - Arthralgia [Unknown]
  - Joint swelling [Unknown]
  - Dyspepsia [Unknown]
  - Bowel movement irregularity [Unknown]
  - Rib fracture [Not Recovered/Not Resolved]
  - Dyspnoea exertional [Not Recovered/Not Resolved]
  - Productive cough [Not Recovered/Not Resolved]
  - Faeces discoloured [Unknown]
  - Feeling jittery [Unknown]
  - Respiration abnormal [Not Recovered/Not Resolved]
  - Attention deficit hyperactivity disorder [Not Recovered/Not Resolved]
  - Feeling abnormal [Unknown]
  - Gastrointestinal disorder [Not Recovered/Not Resolved]
  - Abdominal discomfort [Not Recovered/Not Resolved]
  - Fatigue [Unknown]
  - Toxicity to various agents [Unknown]
  - Medication error [Unknown]
  - Blood pressure increased [Unknown]
  - Extra dose administered [Unknown]
  - Decreased activity [Unknown]
  - Limb injury [Unknown]
  - Gait disturbance [Unknown]
  - Gastrooesophageal reflux disease [Unknown]
  - Decreased appetite [Unknown]
  - Blood folate decreased [Unknown]
  - Stomatitis [Unknown]
  - Sputum discoloured [Unknown]

NARRATIVE: CASE EVENT DATE: 20230101
